FAERS Safety Report 9714080 (Version 1)
Quarter: 2013Q4

REPORT INFORMATION
  Report Type: Spontaneous
  Country: US (occurrence: None)
  Receive Date: 20131122
  Receipt Date: 20131122
  Transmission Date: 20140711
  Serious: Yes (Hospitalization)
  Sender: FDA-Public Use
  Company Number: 2013-1833

PATIENT
  Age: 59 Year
  Sex: Female
  Weight: 63.6 kg

DRUGS (21)
  1. CARFILZOMIB [Suspect]
     Indication: PLASMA CELL MYELOMA
     Dosage: 316 MG, DAYS 1, 2 INTRAVENOUS
     Route: 042
     Dates: start: 20131023
  2. CYCLOPHOSPHAMIDE (CYCLOPHOSPHAMIDE) [Concomitant]
  3. THALIDOMIDE (THALIDOMIDE) [Concomitant]
  4. DEXAMETHASONE (DEXAMETHASONE) [Concomitant]
  5. ACYCLOVIR (ACICLOVIR) (ACICLOVIR) [Concomitant]
  6. ALLOPURINOL (ALLOPURINAL) [Concomitant]
  7. ASPIRIN (ACETYLSALICYLIC ACID) (ACETYLSALICYLIC ACID) [Concomitant]
  8. ATIVAN (LORAZEPAM) (LORAZEPAM) [Concomitant]
  9. CITALOPRAM (CITALOPRAM ) (CITALOPRAM) [Concomitant]
  10. ESTRADIOL (ESTRADIOL) (ESTRADIOL) [Concomitant]
  11. GEMFIBROZIL (GEMFIBROZIL) (GEMFIBROZIL) [Concomitant]
  12. GLUCOSAMINE-CHONDROITIN COMPLEX (CHONDROITIN SULFATE, GLUCOSAMINE SULFATE) (CHONDROITIN SULFATE, GLUCOSAMIDE SULFATE) [Concomitant]
  13. HYDROMORPHONE (HYDROMORPHONE) (HYDROMORPHONE) [Concomitant]
  14. LEVAQUIN (LEVOFLOXACIN) (LEVOFLOXACIN) [Concomitant]
  15. LIDODERM (LIDOCAINE) (LIDOCAINE) [Concomitant]
  16. PRAVASTATIN (PRAVASTATIN) (PRAVASTATIN) [Concomitant]
  17. PRILOSEC (OMEPRAZOLE) (OMEPRAZOLE) [Concomitant]
  18. PROCHLORPERAZINE (PROCHLORPERAZINE) (PROCHLORPERAZINE) [Concomitant]
  19. TRAMADOL (TRAMADOL) (TRAMADOL) [Concomitant]
  20. LOSARTAN/HYDROCHLOROTHIAZIDE (HYDROCHLOROTHIAZIDEM LOSARTAN POTASSIUM) (HYDROCHLOROTHIAZIDE, LOSARTAN POTASSIUM) [Concomitant]
  21. ZOMETA (ZOLEDRONIC ACID) (ZOLEDRONIC ACID) [Concomitant]

REACTIONS (7)
  - Hypotension [None]
  - Pneumonia [None]
  - Dehydration [None]
  - Urinary tract infection [None]
  - Hypophagia [None]
  - Nausea [None]
  - Rash [None]
